FAERS Safety Report 5470380-7 (Version None)
Quarter: 2007Q3

REPORT INFORMATION
  Report Type: 
  Country: None (occurrence: None)
  Receive Date: 20070820
  Receipt Date: 20070628
  Transmission Date: 20080115
  Serious: No
  Sender: FDA-Public Use
  Company Number: WAES 0706USA05229

PATIENT
  Age: 60 Year
  Sex: Male

DRUGS (3)
  1. JANUVIA [Suspect]
     Indication: BLOOD GLUCOSE
     Dosage: 100MG/DAILY/PO
     Route: 048
     Dates: start: 20070621
  2. LOTREL [Concomitant]
  3. VYTORIN [Concomitant]

REACTIONS (2)
  - NAUSEA [None]
  - VOMITING [None]
